FAERS Safety Report 4921266-5 (Version None)
Quarter: 2006Q1

REPORT INFORMATION
  Report Type: 
  Country: None (occurrence: None)
  Receive Date: 20060224
  Receipt Date: 20060210
  Transmission Date: 20060701
  Serious: Yes (Other)
  Sender: FDA-Public Use
  Company Number: US-KINGPHARMUSA00001-K200600210

PATIENT
  Age: 63 Year
  Sex: Male

DRUGS (10)
  1. ALTACE [Suspect]
     Dosage: 10 MG, QD
     Dates: start: 20010510
  2. ATENOLOL [Suspect]
     Dosage: 50 MG, QD
  3. MYOCRISIN [Suspect]
     Indication: RHEUMATOID ARTHRITIS
     Dosage: 50 MG, QMON
     Route: 030
     Dates: start: 19840101, end: 20020801
  4. ISOSORBIDE MONONITRATE [Concomitant]
     Dosage: 120 MG, QD
  5. ACETYLSALICYLIC ACID SRT [Concomitant]
     Dosage: 75 MG, QD
  6. ATORVASTATIN CALCIUM [Concomitant]
     Dosage: 20 MG, QD
  7. NICORANDIL [Concomitant]
     Dosage: 20 MG, QD
  8. AMLODIPINE [Concomitant]
     Dosage: 10 MG, QD
  9. CLOPIDOGREL [Concomitant]
     Dosage: 75 MG, QD
  10. PREDNISOLONE [Concomitant]
     Dosage: 5 MG, QD

REACTIONS (7)
  - ANGINA PECTORIS [None]
  - DRUG INTERACTION [None]
  - HYPOTENSION [None]
  - MALAISE [None]
  - NAUSEA [None]
  - NITRITOID CRISIS [None]
  - SYNCOPE VASOVAGAL [None]
